FAERS Safety Report 19157777 (Version 1)
Quarter: 2021Q2

REPORT INFORMATION
  Report Type: Spontaneous
  Country: US (occurrence: US)
  Receive Date: 20210420
  Receipt Date: 20210420
  Transmission Date: 20210717
  Serious: No
  Sender: FDA-Public Use
  Company Number: US-ALLERGAN-2017184US

PATIENT
  Age: 72 Year
  Sex: Female
  Weight: 40.82 kg

DRUGS (2)
  1. CALCIUM [Concomitant]
     Active Substance: CALCIUM
  2. RISEDRONATE SODIUM 5MG TAB (TBD) [Suspect]
     Active Substance: RISEDRONATE SODIUM
     Indication: OSTEOPOROSIS
     Dosage: 35 MG, Q WEEK
     Route: 048
     Dates: start: 202004

REACTIONS (3)
  - Gastrooesophageal reflux disease [Unknown]
  - Blood parathyroid hormone increased [Unknown]
  - Dyspepsia [Not Recovered/Not Resolved]

NARRATIVE: CASE EVENT DATE: 202004
